FAERS Safety Report 9113032 (Version 1)
Quarter: 2013Q1

REPORT INFORMATION
  Report Type: Spontaneous
  Country: US (occurrence: US)
  Receive Date: 20130201
  Receipt Date: 20130201
  Transmission Date: 20140127
  Serious: No
  Sender: FDA-Public Use
  Company Number: US-009507513-1301USA014127

PATIENT
  Age: 66 Year
  Sex: Female

DRUGS (3)
  1. JANUMET [Suspect]
     Indication: DIABETES MELLITUS
     Dosage: 100 MG, QD
     Route: 048
  2. METFORMIN [Concomitant]
  3. VITAMINS (UNSPECIFIED) [Concomitant]

REACTIONS (5)
  - Feeling jittery [Unknown]
  - Confusional state [Unknown]
  - Hyperhidrosis [Unknown]
  - Insomnia [Unknown]
  - Rhinorrhoea [Unknown]
